FAERS Safety Report 4791262-X (Version None)
Quarter: 2005Q4

REPORT INFORMATION
  Report Type: 
  Country: None (occurrence: None)
  Receive Date: 20051005
  Receipt Date: 20050920
  Transmission Date: 20060501
  Serious: Yes (Other)
  Sender: FDA-Public Use
  Company Number: UKP05000257

PATIENT
  Age: 42 Year
  Sex: Female

DRUGS (4)
  1. DANTRIUM [Suspect]
     Indication: MUSCULOSKELETAL STIFFNESS
     Dosage: 50 MG, ORAL
     Route: 048
  2. REBIF [Concomitant]
  3. GABAPENTIN [Concomitant]
  4. SEROXAT ^CIBA-GEIGY^ (PAROXETINE HYDROCHLORIDE) [Concomitant]

REACTIONS (2)
  - ABORTION INDUCED [None]
  - DRUG EXPOSURE DURING PREGNANCY [None]
